FAERS Safety Report 13935258 (Version 1)
Quarter: 2017Q3

REPORT INFORMATION
  Report Type: Spontaneous
  Country: US (occurrence: None)
  Receive Date: 20170901
  Receipt Date: 20170901
  Transmission Date: 20171127
  Serious: Yes (Other)
  Sender: FDA-Public Use
  Company Number: None

PATIENT
  Age: 30 Year
  Sex: Female
  Weight: 92.53 kg

DRUGS (2)
  1. VIVITROL [Suspect]
     Active Substance: NALTREXONE
     Indication: DRUG DEPENDENCE
     Dosage: 28-30 DAYS
     Route: 030
     Dates: start: 20170307, end: 20170725
  2. VIVITROL [Suspect]
     Active Substance: NALTREXONE
     Indication: DRUG DEPENDENCE
     Dosage: 28-30 DAYS
     Route: 030
     Dates: start: 20170307, end: 20170725

REACTIONS (1)
  - Depression [None]

NARRATIVE: CASE EVENT DATE: 20170805
